FAERS Safety Report 6171960-6 (Version None)
Quarter: 2009Q2

REPORT INFORMATION
  Report Type: 
  Country: None (occurrence: None)
  Receive Date: 20090424
  Receipt Date: 20090206
  Transmission Date: 20091009
  Serious: No
  Sender: FDA-Public Use
  Company Number: ALL1-2009-00295

PATIENT
  Age: 34 Year
  Sex: Male
  Weight: 74.8 kg

DRUGS (4)
  1. VYVANSE [Suspect]
     Indication: ATTENTION DEFICIT/HYPERACTIVITY DISORDER
     Dosage: 70 MG, 1X/DAY:QD, ORAL; ONE-HALF OF 70 MG. CAPSULE, ORAL
     Route: 048
     Dates: start: 20081201, end: 20090205
  2. VYVANSE [Suspect]
     Indication: ATTENTION DEFICIT/HYPERACTIVITY DISORDER
     Dosage: 70 MG, 1X/DAY:QD, ORAL; ONE-HALF OF 70 MG. CAPSULE, ORAL
     Route: 048
     Dates: start: 20090206, end: 20090206
  3. OXYCONTIN [Concomitant]
  4. TEMAZEPAM [Concomitant]

REACTIONS (3)
  - DRUG INEFFECTIVE [None]
  - INCORRECT DOSE ADMINISTERED [None]
  - SOMNOLENCE [None]
